FAERS Safety Report 8875689 (Version 1)
Quarter: 2012Q4

REPORT INFORMATION
  Report Type: Report from Study
  Country: JP (occurrence: JP)
  Receive Date: 20121030
  Receipt Date: 20121030
  Transmission Date: 20130627
  Serious: Yes (Death, Hospitalization, Other)
  Sender: FDA-Public Use
  Company Number: JP-ROCHE-1149073

PATIENT
  Age: 83 Year
  Sex: Female
  Weight: 44 kg

DRUGS (10)
  1. OMALIZUMAB [Suspect]
     Indication: ASTHMA
     Route: 058
     Dates: start: 20091202, end: 20100319
  2. ADOAIR [Concomitant]
     Route: 065
     Dates: start: 20090601
  3. KIPRES [Concomitant]
     Route: 065
     Dates: start: 20090601
  4. THEO-DUR [Concomitant]
     Route: 065
     Dates: start: 20090601
  5. PREDNISOLONE [Concomitant]
  6. MEPTIN [Concomitant]
     Route: 065
     Dates: start: 20090925
  7. BLOPRESS [Concomitant]
     Route: 065
     Dates: start: 20091202, end: 20100602
  8. AMARYL [Concomitant]
     Route: 065
     Dates: start: 20091202, end: 20100602
  9. BENET [Concomitant]
     Route: 065
     Dates: start: 20091202, end: 20100602
  10. OMEPRAL [Concomitant]
     Route: 065
     Dates: start: 20091202, end: 20100602

REACTIONS (3)
  - Pulmonary mycosis [Fatal]
  - Asthma [Fatal]
  - Immunodeficiency [Unknown]
